FAERS Safety Report 6101526-5 (Version None)
Quarter: 2009Q1

REPORT INFORMATION
  Report Type: 
  Country: None (occurrence: None)
  Receive Date: 20090303
  Receipt Date: 20090303
  Transmission Date: 20090719
  Serious: Yes (Life-Threatening, Hospitalization, Other)
  Sender: FDA-Public Use
  Company Number: None

PATIENT
  Sex: Female
  Weight: 68.0396 kg

DRUGS (1)
  1. SEROQUEL [Suspect]
     Indication: ANXIETY
     Dosage: 100MG  PER DAY, BEDTIME 1 A DAY PO
     Route: 048
     Dates: start: 20090216, end: 20090219

REACTIONS (11)
  - ACTIVITIES OF DAILY LIVING IMPAIRED [None]
  - ASTHENIA [None]
  - FALL [None]
  - HYPERHIDROSIS [None]
  - MUSCLE SPASMS [None]
  - MUSCLE TWITCHING [None]
  - MUSCULOSKELETAL STIFFNESS [None]
  - OEDEMA PERIPHERAL [None]
  - PARAESTHESIA [None]
  - SPINAL DISORDER [None]
  - SWELLING [None]
